FAERS Safety Report 5075342-X (Version None)
Quarter: 2006Q3

REPORT INFORMATION
  Report Type: 
  Country: None (occurrence: None)
  Receive Date: 20060809
  Receipt Date: 20051123
  Transmission Date: 20061208
  Serious: No
  Sender: FDA-Public Use
  Company Number: US-AMGEN-KDL159286

PATIENT
  Age: 54 Year
  Sex: Male
  Weight: 158.4 kg

DRUGS (6)
  1. PROCRIT [Suspect]
     Indication: MYELODYSPLASTIC SYNDROME
     Route: 058
     Dates: start: 20010801, end: 20051123
  2. INSULIN [Concomitant]
  3. GLUCOPHAG [Concomitant]
  4. ACTOS [Concomitant]
  5. FUROSEMIDE [Concomitant]
  6. POTASSIUM CHLORIDE [Concomitant]

REACTIONS (2)
  - BACK PAIN [None]
  - FATIGUE [None]
